FAERS Safety Report 17682221 (Version 4)
Quarter: 2020Q2

REPORT INFORMATION
  Report Type: Spontaneous
  Country: PT (occurrence: PT)
  Receive Date: 20200418
  Receipt Date: 20200605
  Transmission Date: 20200714
  Serious: Yes (Death, Hospitalization, Other)
  Sender: FDA-Public Use
  Company Number: PT-AUROBINDO-AUR-APL-2020-019043

PATIENT
  Age: 52 Year
  Sex: Male

DRUGS (5)
  1. VANCOMYCIN POWDER FOR SOLUTION FOR INFUSION [Suspect]
     Active Substance: VANCOMYCIN
     Indication: ACTINOMYCOSIS
     Dosage: UNK
     Route: 042
     Dates: start: 20150213, end: 20150214
  2. AMOXICILLIN+CLAVULANIC ACID [Suspect]
     Active Substance: AMOXICILLIN\CLAVULANIC ACID
     Indication: PNEUMONIA ASPIRATION
     Dosage: UNK
     Route: 065
  3. VANCOMYCIN POWDER FOR SOLUTION FOR INFUSION [Suspect]
     Active Substance: VANCOMYCIN
     Indication: SEPSIS
  4. PIPERACILLIN+TAZOBACTAM INJECTION [Suspect]
     Active Substance: PIPERACILLIN SODIUM\TAZOBACTAM SODIUM
     Indication: SEPSIS
     Dosage: 4.5 GRAM, FOUR TIMES/DAY
     Route: 042
     Dates: start: 20150213, end: 20150214
  5. PIPERACILLIN+TAZOBACTAM INJECTION [Suspect]
     Active Substance: PIPERACILLIN SODIUM\TAZOBACTAM SODIUM
     Indication: ACTINOMYCOSIS

REACTIONS (7)
  - Pleural infection [Unknown]
  - Respiratory failure [Fatal]
  - Condition aggravated [Fatal]
  - Acute pulmonary oedema [Fatal]
  - Septic shock [Fatal]
  - Empyema [Fatal]
  - Dyspnoea [Unknown]
